FAERS Safety Report 10905051 (Version 1)
Quarter: 2015Q1

REPORT INFORMATION
  Report Type: Spontaneous
  Country: US (occurrence: None)
  Receive Date: 20150309
  Receipt Date: 20150309
  Transmission Date: 20150721
  Serious: Yes (Other)
  Sender: FDA-Public Use
  Company Number: None

PATIENT
  Age: 82 Year
  Sex: Male
  Weight: 63.5 kg

DRUGS (7)
  1. SULFAMETHOXAZOLE AND TRIMETHOPRI 800/160 AMNEAL [Suspect]
     Active Substance: SULFAMETHOXAZOLE\TRIMETHOPRIM
     Indication: MALAISE
     Route: 048
     Dates: start: 20150305, end: 20150306
  2. TAMSULOSIN [Concomitant]
     Active Substance: TAMSULOSIN
  3. ESCITALOPRAM [Concomitant]
     Active Substance: ESCITALOPRAM OXALATE
  4. AMLODIPINE [Concomitant]
     Active Substance: AMLODIPINE BESYLATE
  5. ALFUZOSIN [Concomitant]
     Active Substance: ALFUZOSIN
  6. ESOMEPRAZOLE [Concomitant]
     Active Substance: ESOMEPRAZOLE
  7. BENICAR [Concomitant]
     Active Substance: OLMESARTAN MEDOXOMIL

REACTIONS (2)
  - Fall [None]
  - Arthralgia [None]

NARRATIVE: CASE EVENT DATE: 20150307
